FAERS Safety Report 10728427 (Version 6)
Quarter: 2016Q1

REPORT INFORMATION
  Report Type: Report from Study
  Country: BR (occurrence: BR)
  Receive Date: 20150122
  Receipt Date: 20160304
  Transmission Date: 20160525
  Serious: Yes (Hospitalization)
  Sender: FDA-Public Use
  Company Number: BR-ROCHE-1523438

PATIENT
  Sex: Female
  Weight: 50 kg

DRUGS (5)
  1. PREDNISOLONE SODIUM PHOSPHATE. [Concomitant]
     Active Substance: PREDNISOLONE SODIUM PHOSPHATE
  2. ACTEMRA [Suspect]
     Active Substance: TOCILIZUMAB
     Indication: RHEUMATOID ARTHRITIS
     Dosage: MOST RECENT IN SEP/2014
     Route: 042
     Dates: start: 201404, end: 2015
  3. FOLACIN [Concomitant]
     Active Substance: FOLIC ACID
  4. CARVEDILOL. [Concomitant]
     Active Substance: CARVEDILOL
  5. SPIRONOLACTONE. [Concomitant]
     Active Substance: SPIRONOLACTONE

REACTIONS (8)
  - Skin ulcer [Not Recovered/Not Resolved]
  - Hypersensitivity [Recovered/Resolved]
  - Memory impairment [Not Recovered/Not Resolved]
  - Bone pain [Not Recovered/Not Resolved]
  - Malaise [Recovered/Resolved]
  - Arthropathy [Unknown]
  - Pain [Not Recovered/Not Resolved]
  - Gait disturbance [Not Recovered/Not Resolved]

NARRATIVE: CASE EVENT DATE: 2015
